FAERS Safety Report 24956337 (Version 1)
Quarter: 2025Q1

REPORT INFORMATION
  Report Type: Report from Study
  Country: US (occurrence: US)
  Receive Date: 20250211
  Receipt Date: 20250211
  Transmission Date: 20250408
  Serious: Yes (Other)
  Sender: MYLAN
  Company Number: US-MYLANLABS-2025M1011721

PATIENT
  Sex: Female
  Weight: 67.13 kg

DRUGS (1)
  1. CELEBREX [Suspect]
     Active Substance: CELECOXIB
     Indication: Product used for unknown indication
     Dosage: 200 MILLIGRAM, AM (ONE A DAY IN THE MORNING BY MOUTH)
     Route: 048

REACTIONS (3)
  - Renal impairment [Unknown]
  - Swelling face [Unknown]
  - Gait disturbance [Unknown]
